FAERS Safety Report 10442617 (Version 3)
Quarter: 2014Q4

REPORT INFORMATION
  Report Type: Spontaneous
  Country: JP (occurrence: JP)
  Receive Date: 20140909
  Receipt Date: 20141113
  Transmission Date: 20150528
  Serious: Yes (Life-Threatening)
  Sender: FDA-Public Use
  Company Number: JP-SA-2014SA121340

PATIENT
  Age: 83 Year
  Sex: Male
  Weight: 54 kg

DRUGS (74)
  1. ELPLAT [Suspect]
     Active Substance: OXALIPLATIN
     Indication: RECTAL CANCER
     Route: 041
     Dates: start: 20140108, end: 20140108
  2. LEVOFOLINATE [Suspect]
     Active Substance: LEVOLEUCOVORIN CALCIUM
     Indication: RECTAL CANCER
     Dosage: I.V. INFUSION
     Route: 041
     Dates: start: 20140507, end: 20140507
  3. LEVOFOLINATE [Suspect]
     Active Substance: LEVOLEUCOVORIN CALCIUM
     Indication: RECTAL CANCER
     Dosage: I.V. INFUSION
     Route: 041
     Dates: start: 20131127, end: 20131127
  4. LEVOFOLINATE [Suspect]
     Active Substance: LEVOLEUCOVORIN CALCIUM
     Indication: RECTAL CANCER
     Dosage: I.V. INFUSION
     Route: 041
     Dates: start: 20140108, end: 20140108
  5. LEVOFOLINATE [Suspect]
     Active Substance: LEVOLEUCOVORIN CALCIUM
     Indication: RECTAL CANCER
     Dosage: I.V. INFUSION
     Route: 041
     Dates: start: 20140129, end: 20140129
  6. 5-FU [Suspect]
     Active Substance: FLUOROURACIL
     Indication: RECTAL CANCER
     Dosage: ONCE IN 2 DAYS
     Route: 041
     Dates: start: 20140618, end: 20140618
  7. DECADRON [Concomitant]
     Active Substance: DEXAMETHASONE
     Dates: start: 20131021, end: 20140730
  8. MAGNESIUM OXIDE. [Concomitant]
     Active Substance: MAGNESIUM OXIDE
     Dates: start: 20131021
  9. ALDACTONE [Concomitant]
     Active Substance: SPIRONOLACTONE
     Dates: start: 20131021
  10. LANIRAPID [Concomitant]
     Active Substance: METILDIGOXIN
     Dates: start: 20131021, end: 20131117
  11. SOLITA T [Concomitant]
     Dates: start: 20140812, end: 20140818
  12. ELPLAT [Suspect]
     Active Substance: OXALIPLATIN
     Indication: RECTAL CANCER
     Route: 041
     Dates: start: 20140528, end: 20140528
  13. ELPLAT [Suspect]
     Active Substance: OXALIPLATIN
     Indication: RECTAL CANCER
     Route: 041
     Dates: start: 20140709, end: 20140709
  14. LEVOFOLINATE [Suspect]
     Active Substance: LEVOLEUCOVORIN CALCIUM
     Indication: RECTAL CANCER
     Dosage: I.V. INFUSION
     Route: 041
     Dates: start: 20140709, end: 20140709
  15. 5-FU [Suspect]
     Active Substance: FLUOROURACIL
     Indication: RECTAL CANCER
     Route: 040
     Dates: start: 20140326, end: 20140326
  16. 5-FU [Suspect]
     Active Substance: FLUOROURACIL
     Indication: RECTAL CANCER
     Dosage: ONCE IN 2 DAYS
     Route: 041
     Dates: start: 20140326, end: 20140326
  17. 5-FU [Suspect]
     Active Substance: FLUOROURACIL
     Indication: RECTAL CANCER
     Dosage: ONCE IN 2 DAYS
     Route: 041
     Dates: start: 20140507, end: 20140507
  18. 5-FU [Suspect]
     Active Substance: FLUOROURACIL
     Indication: RECTAL CANCER
     Route: 040
     Dates: start: 20140528, end: 20140528
  19. EMEND [Concomitant]
     Active Substance: APREPITANT
     Dates: start: 20131127, end: 20140801
  20. ELPLAT [Suspect]
     Active Substance: OXALIPLATIN
     Indication: RECTAL CANCER
     Route: 041
     Dates: start: 20140129, end: 20140129
  21. ELPLAT [Suspect]
     Active Substance: OXALIPLATIN
     Indication: RECTAL CANCER
     Route: 041
     Dates: start: 20140730, end: 20140730
  22. LEVOFOLINATE [Suspect]
     Active Substance: LEVOLEUCOVORIN CALCIUM
     Indication: RECTAL CANCER
     Dosage: I.V. INFUSION
     Route: 041
     Dates: start: 20140226, end: 20140226
  23. 5-FU [Suspect]
     Active Substance: FLUOROURACIL
     Indication: RECTAL CANCER
     Route: 040
     Dates: start: 20131105, end: 20131105
  24. 5-FU [Suspect]
     Active Substance: FLUOROURACIL
     Indication: RECTAL CANCER
     Route: 040
     Dates: start: 20131127, end: 20131127
  25. 5-FU [Suspect]
     Active Substance: FLUOROURACIL
     Indication: RECTAL CANCER
     Dosage: ONCE IN 2 DAYS
     Route: 041
     Dates: start: 20131211, end: 20131211
  26. 5-FU [Suspect]
     Active Substance: FLUOROURACIL
     Indication: RECTAL CANCER
     Route: 040
     Dates: start: 20140507, end: 20140507
  27. ALLOPURINOL. [Suspect]
     Active Substance: ALLOPURINOL
     Indication: BLOOD URIC ACID ABNORMAL
     Route: 048
     Dates: start: 20131021, end: 20131117
  28. VEEN D [Concomitant]
     Active Substance: CALCIUM CHLORIDE\DEXTROSE\POTASSIUM CHLORIDE\SODIUM ACETATE\SODIUM CHLORIDE
     Dates: start: 20140811, end: 20140812
  29. ELPLAT [Suspect]
     Active Substance: OXALIPLATIN
     Indication: RECTAL CANCER
     Route: 041
     Dates: start: 20131127, end: 20131127
  30. ELPLAT [Suspect]
     Active Substance: OXALIPLATIN
     Indication: RECTAL CANCER
     Route: 041
     Dates: start: 20131211, end: 20131211
  31. ELPLAT [Suspect]
     Active Substance: OXALIPLATIN
     Indication: RECTAL CANCER
     Route: 041
     Dates: start: 20140226, end: 20140226
  32. LEVOFOLINATE [Suspect]
     Active Substance: LEVOLEUCOVORIN CALCIUM
     Indication: RECTAL CANCER
     Dosage: I.V. INFUSION
     Route: 041
     Dates: start: 20140326, end: 20140326
  33. LEVOFOLINATE [Suspect]
     Active Substance: LEVOLEUCOVORIN CALCIUM
     Indication: RECTAL CANCER
     Dosage: I.V. INFUSION
     Route: 041
     Dates: start: 20140528, end: 20140528
  34. 5-FU [Suspect]
     Active Substance: FLUOROURACIL
     Indication: RECTAL CANCER
     Dosage: ONCE IN 2 DAYS
     Route: 041
     Dates: start: 20131105, end: 20131105
  35. 5-FU [Suspect]
     Active Substance: FLUOROURACIL
     Indication: RECTAL CANCER
     Dosage: ONCE IN 2 DAYS
     Route: 041
     Dates: start: 20140416, end: 20140416
  36. 5-FU [Suspect]
     Active Substance: FLUOROURACIL
     Indication: RECTAL CANCER
     Dosage: ONCE IN 2 DAYS
     Route: 041
     Dates: start: 20140528, end: 20140528
  37. 5-FU [Suspect]
     Active Substance: FLUOROURACIL
     Indication: RECTAL CANCER
     Route: 040
     Dates: start: 20140618, end: 20140618
  38. 5-FU [Suspect]
     Active Substance: FLUOROURACIL
     Indication: RECTAL CANCER
     Route: 040
     Dates: start: 20140709, end: 20140709
  39. ELPLAT [Suspect]
     Active Substance: OXALIPLATIN
     Indication: RECTAL CANCER
     Route: 041
     Dates: start: 20140326, end: 20140326
  40. LEVOFOLINATE [Suspect]
     Active Substance: LEVOLEUCOVORIN CALCIUM
     Indication: RECTAL CANCER
     Dosage: I.V. INFUSION
     Route: 041
     Dates: start: 20140618, end: 20140618
  41. LEVOFOLINATE [Suspect]
     Active Substance: LEVOLEUCOVORIN CALCIUM
     Indication: RECTAL CANCER
     Dosage: I.V. INFUSION
     Route: 041
     Dates: start: 20131105, end: 20131105
  42. 5-FU [Suspect]
     Active Substance: FLUOROURACIL
     Indication: RECTAL CANCER
     Route: 040
     Dates: start: 20131211, end: 20131211
  43. 5-FU [Suspect]
     Active Substance: FLUOROURACIL
     Indication: RECTAL CANCER
     Route: 040
     Dates: start: 20140129, end: 20140129
  44. 5-FU [Suspect]
     Active Substance: FLUOROURACIL
     Indication: RECTAL CANCER
     Route: 040
     Dates: start: 20140226, end: 20140226
  45. 5-FU [Suspect]
     Active Substance: FLUOROURACIL
     Indication: RECTAL CANCER
     Route: 040
     Dates: start: 20140416, end: 20140416
  46. GRANISETRON [Concomitant]
     Active Substance: GRANISETRON
     Dates: start: 20131021, end: 20131105
  47. FLUITRAN [Concomitant]
     Active Substance: TRICHLORMETHIAZIDE
     Dates: start: 20131021, end: 20131117
  48. RINGER-ACETAT SPECIAL [Concomitant]
     Dates: start: 20140810, end: 20140811
  49. ELPLAT [Suspect]
     Active Substance: OXALIPLATIN
     Indication: RECTAL CANCER
     Route: 041
     Dates: start: 20140618, end: 20140618
  50. LEVOFOLINATE [Suspect]
     Active Substance: LEVOLEUCOVORIN CALCIUM
     Indication: RECTAL CANCER
     Dosage: I.V. INFUSION
     Route: 041
     Dates: start: 20140730, end: 20140730
  51. LEVOFOLINATE [Suspect]
     Active Substance: LEVOLEUCOVORIN CALCIUM
     Indication: RECTAL CANCER
     Dosage: I.V. INFUSION
     Route: 041
     Dates: start: 20131211, end: 20131211
  52. 5-FU [Suspect]
     Active Substance: FLUOROURACIL
     Indication: RECTAL CANCER
     Dosage: ONCE IN 2 DAYS
     Route: 041
     Dates: start: 20131127, end: 20131127
  53. 5-FU [Suspect]
     Active Substance: FLUOROURACIL
     Indication: RECTAL CANCER
     Dosage: ONCE IN 2 DAYS
     Route: 041
     Dates: start: 20140226, end: 20140226
  54. 5-FU [Suspect]
     Active Substance: FLUOROURACIL
     Indication: RECTAL CANCER
     Dosage: ONCE IN 2 DAYS
     Route: 041
     Dates: start: 20140709, end: 20140709
  55. 5-FU [Suspect]
     Active Substance: FLUOROURACIL
     Indication: RECTAL CANCER
     Dosage: ONCE IN 2 DAYS
     Route: 041
     Dates: start: 20140730, end: 20140730
  56. WARFARIN [Concomitant]
     Active Substance: WARFARIN
     Dates: start: 20131021, end: 20131216
  57. ELPLAT [Suspect]
     Active Substance: OXALIPLATIN
     Indication: RECTAL CANCER
     Route: 041
     Dates: start: 20140416, end: 20140416
  58. ELPLAT [Suspect]
     Active Substance: OXALIPLATIN
     Indication: RECTAL CANCER
     Route: 041
     Dates: start: 20140507, end: 20140507
  59. 5-FU [Suspect]
     Active Substance: FLUOROURACIL
     Indication: RECTAL CANCER
     Dosage: ONCE IN 2 DAYS
     Route: 041
     Dates: start: 20131021, end: 20131021
  60. 5-FU [Suspect]
     Active Substance: FLUOROURACIL
     Indication: RECTAL CANCER
     Route: 040
     Dates: start: 20140108, end: 20140108
  61. 5-FU [Suspect]
     Active Substance: FLUOROURACIL
     Indication: RECTAL CANCER
     Dosage: ONCE IN 2 DAYS
     Route: 041
     Dates: start: 20140108, end: 20140108
  62. 5-FU [Suspect]
     Active Substance: FLUOROURACIL
     Indication: RECTAL CANCER
     Dosage: ONCE IN 2 DAYS
     Route: 041
     Dates: start: 20140129, end: 20140129
  63. OMEPRAZON [Suspect]
     Active Substance: OMEPRAZOLE
     Indication: GASTROOESOPHAGEAL REFLUX DISEASE
     Route: 048
     Dates: start: 20131021, end: 20140812
  64. ALLOPURINOL. [Suspect]
     Active Substance: ALLOPURINOL
     Indication: BLOOD URIC ACID ABNORMAL
     Route: 048
     Dates: start: 20140730, end: 20140812
  65. ALLOPURINOL. [Suspect]
     Active Substance: ALLOPURINOL
     Indication: BLOOD URIC ACID ABNORMAL
     Route: 048
     Dates: start: 20131118, end: 20140729
  66. ALOXI [Concomitant]
     Active Substance: PALONOSETRON HYDROCHLORIDE
     Dates: start: 20131127, end: 20140730
  67. CEFTRIAXONE. [Concomitant]
     Active Substance: CEFTRIAXONE
     Dates: start: 20140810, end: 20140818
  68. ELPLAT [Suspect]
     Active Substance: OXALIPLATIN
     Indication: RECTAL CANCER
     Route: 041
     Dates: start: 20131021, end: 20131021
  69. ELPLAT [Suspect]
     Active Substance: OXALIPLATIN
     Indication: RECTAL CANCER
     Route: 041
     Dates: start: 20131105, end: 20131105
  70. LEVOFOLINATE [Suspect]
     Active Substance: LEVOLEUCOVORIN CALCIUM
     Indication: RECTAL CANCER
     Dosage: I.V. INFUSION
     Route: 041
     Dates: start: 20131021, end: 20131021
  71. LEVOFOLINATE [Suspect]
     Active Substance: LEVOLEUCOVORIN CALCIUM
     Indication: RECTAL CANCER
     Dosage: I.V. INFUSION
     Route: 041
     Dates: start: 20140416, end: 20140416
  72. 5-FU [Suspect]
     Active Substance: FLUOROURACIL
     Indication: RECTAL CANCER
     Route: 040
     Dates: start: 20131021, end: 20131021
  73. LANIRAPID [Concomitant]
     Active Substance: METILDIGOXIN
     Dates: start: 20131021, end: 20131117
  74. ALL OTHER THERAPEUTIC PRODUCTS [Concomitant]
     Active Substance: UNSPECIFIED INGREDIENT
     Dates: start: 20140812, end: 20140812

REACTIONS (1)
  - Rhabdomyolysis [Recovered/Resolved]

NARRATIVE: CASE EVENT DATE: 20140812
